FAERS Safety Report 8654454 (Version 3)
Quarter: 2013Q4

REPORT INFORMATION
  Report Type: Spontaneous
  Country: US (occurrence: US)
  Receive Date: 20120709
  Receipt Date: 20131205
  Transmission Date: 20140711
  Serious: Yes (Hospitalization, Other)
  Sender: FDA-Public Use
  Company Number: US-BAYER-2012-066265

PATIENT
  Age: 15 Year
  Sex: Female
  Weight: 113.38 kg

DRUGS (15)
  1. YAZ [Suspect]
     Indication: MENSTRUATION IRREGULAR
     Dosage: UNK
  2. YAZ [Suspect]
     Indication: MENORRHAGIA
  3. PROCHLORPERAZINE [Concomitant]
     Dosage: 10 MG, UNK
  4. CHLORHEXIDINE [Concomitant]
  5. HYDROCODONE/ACETAMINOPHEN [Concomitant]
     Dosage: 5/500 MG
  6. PENICILLIN VK [Concomitant]
     Dosage: 500 MG, UNK
  7. ASPIRIN [Concomitant]
  8. ALEVE [Concomitant]
  9. TYLENOL WITH CODEINE [Concomitant]
  10. ALAVERT [Concomitant]
     Indication: MULTIPLE ALLERGIES
  11. CELEBREX [Concomitant]
  12. LORTAB [Concomitant]
  13. OXYCODONE [Concomitant]
  14. TRAMADOL [Concomitant]
  15. COLACE [Concomitant]

REACTIONS (5)
  - Pulmonary embolism [None]
  - Deep vein thrombosis [Recovering/Resolving]
  - Deep vein thrombosis [None]
  - Injury [None]
  - Pain [None]
